FAERS Safety Report 6940976-1 (Version None)
Quarter: 2010Q3

REPORT INFORMATION
  Report Type: 
  Country: None (occurrence: None)
  Receive Date: 20100825
  Receipt Date: 20100818
  Transmission Date: 20110219
  Serious: Yes (Hospitalization)
  Sender: FDA-Public Use
  Company Number: A0876519A

PATIENT
  Age: 85 Year
  Sex: Male

DRUGS (12)
  1. ADVAIR DISKUS 100/50 [Suspect]
     Indication: CHRONIC OBSTRUCTIVE PULMONARY DISEASE
     Route: 055
  2. ALBUTEROL [Suspect]
     Indication: CHRONIC OBSTRUCTIVE PULMONARY DISEASE
     Route: 055
  3. TOPROL-XL [Concomitant]
  4. PREVACID [Concomitant]
  5. FLOMAX [Concomitant]
  6. PRAVASTATIN [Concomitant]
  7. SPIRIVA [Concomitant]
  8. ALBUTEROL SULATE [Concomitant]
  9. MUCINEX [Concomitant]
  10. CLARINEX [Concomitant]
  11. CITALOPRAM HYDROBROMIDE [Concomitant]
  12. IRON [Concomitant]

REACTIONS (3)
  - CHRONIC OBSTRUCTIVE PULMONARY DISEASE [None]
  - NAUSEA [None]
  - PNEUMONIA [None]
